FAERS Safety Report 23626217 (Version 3)
Quarter: 2024Q2

REPORT INFORMATION
  Report Type: Spontaneous
  Country: US (occurrence: US)
  Receive Date: 20240313
  Receipt Date: 20240427
  Transmission Date: 20240716
  Serious: Yes (Hospitalization, Other)
  Sender: FDA-Public Use
  Company Number: US-Accord-411137

PATIENT
  Age: 54 Year
  Sex: Female
  Weight: 71.0 kg

DRUGS (40)
  1. AMLODIPINE [Suspect]
     Active Substance: AMLODIPINE BESYLATE
     Indication: Product used for unknown indication
     Dosage: 2.5 MG EVERY OTHER DAY BEFORE STUDY
     Route: 048
     Dates: start: 20220801
  2. ASPIRIN [Concomitant]
     Active Substance: ASPIRIN
     Dates: start: 20201101
  3. METOPROLOL [Concomitant]
     Active Substance: METOPROLOL
     Dates: start: 20220801
  4. FORMOTEROL\MOMETASONE [Concomitant]
     Active Substance: FORMOTEROL\MOMETASONE
     Dates: start: 20200601
  5. FAMOTIDINE [Concomitant]
     Active Substance: FAMOTIDINE
     Dates: start: 20200501
  6. PANTOPRAZOLE SODIUM [Concomitant]
     Active Substance: PANTOPRAZOLE SODIUM
     Dates: start: 20200401
  7. SUCRALFATE [Concomitant]
     Active Substance: SUCRALFATE
     Dates: start: 20210101
  8. LIDOCAINE [Concomitant]
     Active Substance: LIDOCAINE
     Dates: start: 20230401
  9. DICLOFENAC [Concomitant]
     Active Substance: DICLOFENAC
     Dates: start: 20230401
  10. PYRIDOXINE [Concomitant]
     Active Substance: PYRIDOXINE
     Dates: start: 20200401
  11. CHOLECALCIFEROL [Concomitant]
     Active Substance: CHOLECALCIFEROL
     Dates: start: 20200301
  12. CARBOXYMETHYLCELLULOSE SODIUM [Concomitant]
     Active Substance: CARBOXYMETHYLCELLULOSE SODIUM
     Dates: start: 20200401
  13. CETIRIZINE [Concomitant]
     Active Substance: CETIRIZINE HYDROCHLORIDE
     Dates: start: 20200401
  14. MONTELUKAST [Concomitant]
     Active Substance: MONTELUKAST SODIUM
     Dates: start: 20200401
  15. MECLIZINE [Concomitant]
     Active Substance: MECLIZINE HYDROCHLORIDE
     Dates: start: 20200401
  16. FLONASE [Concomitant]
     Active Substance: FLUTICASONE PROPIONATE
     Dates: start: 20200301
  17. ZOFRAN [Concomitant]
     Active Substance: ONDANSETRON HYDROCHLORIDE
     Dates: start: 20200301
  18. HYDROXYZINE [Concomitant]
     Active Substance: HYDROXYZINE HYDROCHLORIDE
     Dates: start: 20210601
  19. MELATONIN [Concomitant]
     Active Substance: MELATONIN
     Dates: start: 20200301
  20. LINACLOTIDE [Concomitant]
     Active Substance: LINACLOTIDE
     Dates: start: 20220301
  21. CLONIDINE [Concomitant]
     Active Substance: CLONIDINE
     Dates: start: 20210201
  22. CYMBALTA [Concomitant]
     Active Substance: DULOXETINE HYDROCHLORIDE
     Dates: start: 20240120
  23. BOTOX [Concomitant]
     Active Substance: ONABOTULINUMTOXINA
     Dosage: EVERY 3 MONTHS
     Dates: start: 20211101
  24. AMANTADINE [Concomitant]
     Active Substance: AMANTADINE
     Dates: start: 20210701
  25. SOLIFENACIN [Concomitant]
     Active Substance: SOLIFENACIN
     Dates: start: 20211001
  26. ZANAFLEX [Concomitant]
     Active Substance: TIZANIDINE HYDROCHLORIDE
     Dates: start: 20230301
  27. EPINEPHRINE HYDROCHLORIDE [Concomitant]
     Active Substance: EPINEPHRINE HYDROCHLORIDE
     Dates: start: 20220101
  28. NARATRIPTAN [Concomitant]
     Active Substance: NARATRIPTAN HYDROCHLORIDE
     Dates: start: 20240101
  29. GALCANEZUMAB [Concomitant]
     Active Substance: GALCANEZUMAB
     Dates: start: 20240101
  30. ALLEGRA [Concomitant]
     Active Substance: FEXOFENADINE HYDROCHLORIDE
     Dates: start: 20210601
  31. XYZAL [Concomitant]
     Active Substance: LEVOCETIRIZINE DIHYDROCHLORIDE
     Dates: start: 20220101
  32. PROBIOTICS NOS [Concomitant]
     Active Substance: PROBIOTICS NOS
     Dates: start: 20210501
  33. VITAMIN C [Concomitant]
     Active Substance: ASCORBIC ACID
     Dates: start: 20210501
  34. QUERCETIN [Concomitant]
     Active Substance: QUERCETIN
     Dates: start: 20210501
  35. FISH OIL\OMEGA-3 FATTY ACIDS [Concomitant]
     Active Substance: FISH OIL\OMEGA-3 FATTY ACIDS
     Dates: start: 20210501
  36. CURCUMEN [Concomitant]
     Dates: start: 20220818
  37. BIOTIN [Concomitant]
     Active Substance: BIOTIN
     Dates: start: 20221101
  38. COLLAGEN [Concomitant]
     Active Substance: COLLAGEN
     Dates: start: 20221101
  39. BUPROPION HYDROCHLORIDE\NALTREXONE HYDROCHLORIDE [Concomitant]
     Active Substance: BUPROPION HYDROCHLORIDE\NALTREXONE HYDROCHLORIDE
     Dates: start: 20210901
  40. AMLODIPINE [Suspect]
     Active Substance: AMLODIPINE BESYLATE
     Indication: Product used for unknown indication
     Dosage: 1.25 EVERY OTHER DAY DURING THE STUDY
     Route: 048
     Dates: start: 20240130

REACTIONS (1)
  - Hypertensive emergency [Not Recovered/Not Resolved]

NARRATIVE: CASE EVENT DATE: 20240214
